FAERS Safety Report 23487208 (Version 1)
Quarter: 2024Q1

REPORT INFORMATION
  Report Type: Spontaneous
  Country: US (occurrence: US)
  Receive Date: 20240206
  Receipt Date: 20240206
  Transmission Date: 20240410
  Serious: No
  Sender: FDA-Public Use
  Company Number: US-BAYER-2024A017304

PATIENT
  Age: 47 Year
  Sex: Male

DRUGS (1)
  1. ASTEPRO [Suspect]
     Active Substance: AZELASTINE HYDROCHLORIDE
     Dosage: 1-2 SPRAY, BID
     Route: 045
     Dates: end: 20240129

REACTIONS (1)
  - Dizziness [Recovering/Resolving]
